FAERS Safety Report 4499481-7 (Version None)
Quarter: 2004Q4

REPORT INFORMATION
  Report Type: 
  Country: None (occurrence: None)
  Receive Date: 20040928
  Receipt Date: 20040625
  Transmission Date: 20050328
  Serious: No
  Sender: FDA-Public Use
  Company Number: 04P-163-0264853-00

PATIENT
  Age: 56 Year
  Sex: Female
  Weight: 68.0396 kg

DRUGS (11)
  1. HUMIRA [Suspect]
     Indication: RHEUMATOID ARTHRITIS
     Dosage: 40 MG, 1 IN 2, SUBCUTANEOUS
     Route: 058
     Dates: start: 20040101, end: 20040617
  2. LEFLUNOMIDE [Concomitant]
  3. FOLIC ACID [Concomitant]
  4. SULINDAC [Concomitant]
  5. RANITIDINE [Concomitant]
  6. RABEPRAZOLE SODIUM [Concomitant]
  7. ANASTROZOLE [Concomitant]
  8. CALCIUM [Concomitant]
  9. METHOTREXATE [Concomitant]
  10. ASCORBIC ACID [Concomitant]
  11. CORTISONE [Concomitant]

REACTIONS (1)
  - BACTERIAL INFECTION [None]
